FAERS Safety Report 15557026 (Version 1)
Quarter: 2018Q4

REPORT INFORMATION
  Report Type: Spontaneous
  Country: GB (occurrence: GB)
  Receive Date: 20181026
  Receipt Date: 20181026
  Transmission Date: 20190205
  Serious: Yes (Other)
  Sender: FDA-Public Use
  Company Number: GB-MYLANLABS-07P-167-0417838-00

PATIENT
  Age: 21 Year
  Sex: Female

DRUGS (9)
  1. IBUPROFEN. [Suspect]
     Active Substance: IBUPROFEN
     Indication: PSEUDOMONAS INFECTION
  2. COLOMYCIN                          /00013206/ [Interacting]
     Active Substance: COLISTIMETHATE SODIUM
     Indication: PSEUDOMONAS INFECTION
     Dosage: 2 MEGAUNITS, 3 TIMES A DAY
     Dates: start: 200311
  3. IBUPROFEN. [Suspect]
     Active Substance: IBUPROFEN
     Indication: ANALGESIC THERAPY
     Dosage: NOT REPORTED
     Dates: start: 2003, end: 2003
  4. TOBRAMYCIN. [Interacting]
     Active Substance: TOBRAMYCIN
     Indication: PSEUDOMONAS INFECTION
     Dosage: 8 MG/KG/DAY
     Route: 042
     Dates: start: 200311
  5. COLISTIN [Concomitant]
     Active Substance: COLISTIN
     Indication: PSEUDOMONAS INFECTION
     Dosage: 2 MEGAUNITS, 3 TIMES A DAY
     Dates: start: 200311
  6. COLISTIN [Concomitant]
     Active Substance: COLISTIN
     Indication: LUNG DISORDER
  7. AZITHROMYCIN ANHYDROUS. [Interacting]
     Active Substance: AZITHROMYCIN ANHYDROUS
     Indication: ANTIINFLAMMATORY THERAPY
     Dosage: NOT REPORTED
     Dates: end: 2003
  8. TOBRAMYCIN. [Interacting]
     Active Substance: TOBRAMYCIN
     Indication: LUNG DISORDER
     Dosage: 32MILLIGRAMQID
     Dates: start: 200311
  9. TOBRAMYCIN. [Interacting]
     Active Substance: TOBRAMYCIN
     Indication: PSEUDOMONAS INFECTION

REACTIONS (11)
  - Blood creatinine increased [Recovered/Resolved]
  - Blood urea increased [Recovered/Resolved]
  - Dyspepsia [Recovered/Resolved]
  - Hypophagia [Recovered/Resolved]
  - Weight decreased [Recovered/Resolved]
  - Vomiting [Recovered/Resolved]
  - Arthropathy [Recovered/Resolved]
  - Drug interaction [Recovered/Resolved]
  - Influenza like illness [Recovered/Resolved]
  - Polyarthritis [Recovered/Resolved]
  - Acute kidney injury [Recovered/Resolved]

NARRATIVE: CASE EVENT DATE: 2003
